FAERS Safety Report 10025533 (Version 1)
Quarter: 2014Q1

REPORT INFORMATION
  Report Type: Spontaneous
  Country: DE (occurrence: DE)
  Receive Date: 20140320
  Receipt Date: 20140320
  Transmission Date: 20141002
  Serious: Yes (Hospitalization)
  Sender: FDA-Public Use
  Company Number: DE-ACTAVIS-2014-04963

PATIENT
  Age: 15 Year
  Sex: Female
  Weight: 84 kg

DRUGS (3)
  1. FLUVOXAMINE (UNKNOWN) [Suspect]
     Indication: DEPRESSION
     Dosage: 50 MG, DAILY
     Route: 048
  2. MIRTAZAPINE (UNKNOWN) [Suspect]
     Indication: DEPRESSION
     Dosage: 7.5 MG, DAILY
     Route: 048
  3. ZINK                               /00156502/ [Concomitant]
     Indication: ZINC DEFICIENCY
     Dosage: 60 MG, DAILY
     Route: 048

REACTIONS (2)
  - Myoclonus [Unknown]
  - Seizure like phenomena [Unknown]
